FAERS Safety Report 5068070-8 (Version None)
Quarter: 2006Q3

REPORT INFORMATION
  Report Type: 
  Country: None (occurrence: None)
  Receive Date: 20060731
  Receipt Date: 20060630
  Transmission Date: 20061208
  Serious: Yes (Other)
  Sender: FDA-Public Use
  Company Number: 2005140802

PATIENT
  Sex: Male

DRUGS (2)
  1. BEXTRA [Suspect]
     Indication: MUSCULOSKELETAL DISCOMFORT
     Dosage: (10 MG, 2 IN 1 D),
     Dates: start: 20031020, end: 20031020
  2. BEXTRA [Suspect]
     Indication: NECK PAIN
     Dosage: (10 MG, 2 IN 1 D),
     Dates: start: 20031020, end: 20031020

REACTIONS (13)
  - ANXIETY [None]
  - ARTERIOVENOUS FISTULA [None]
  - CEREBRAL HAEMORRHAGE [None]
  - CEREBROVASCULAR ACCIDENT [None]
  - CHEST DISCOMFORT [None]
  - DEPRESSION [None]
  - DIZZINESS [None]
  - DYSPNOEA [None]
  - HEADACHE [None]
  - HYPOAESTHESIA [None]
  - HYPOAESTHESIA FACIAL [None]
  - SEXUAL DYSFUNCTION [None]
  - VERTIGO [None]
